FAERS Safety Report 11888994 (Version 2)
Quarter: 2016Q3

REPORT INFORMATION
  Report Type: Spontaneous
  Country: US (occurrence: US)
  Receive Date: 20160105
  Receipt Date: 20160708
  Transmission Date: 20161109
  Serious: No
  Sender: FDA-Public Use
  Company Number: US-PFIZER INC-2015477828

PATIENT
  Age: 66 Year
  Sex: Female

DRUGS (21)
  1. PREDNISONE. [Concomitant]
     Active Substance: PREDNISONE
     Dosage: 5 MG, UNK
  2. TOPROL XL [Concomitant]
     Active Substance: METOPROLOL SUCCINATE
     Dosage: 25 MG, UNK
  3. ATORVASTATIN CALCIUM. [Concomitant]
     Active Substance: ATORVASTATIN CALCIUM
     Dosage: 10 MG, UNK
  4. XANAX [Concomitant]
     Active Substance: ALPRAZOLAM
     Dosage: UNK
  5. ARAVA [Concomitant]
     Active Substance: LEFLUNOMIDE
     Indication: JOINT SWELLING
     Dosage: UNK
  6. ARAVA [Concomitant]
     Active Substance: LEFLUNOMIDE
     Indication: PERIPHERAL SWELLING
  7. SUCRALFATE. [Concomitant]
     Active Substance: SUCRALFATE
     Dosage: UNK
  8. XELJANZ [Suspect]
     Active Substance: TOFACITINIB CITRATE
     Indication: RHEUMATOID ARTHRITIS
     Dosage: 5 MG, 2X/DAY
     Route: 048
     Dates: start: 20150909
  9. XELJANZ [Suspect]
     Active Substance: TOFACITINIB CITRATE
     Dosage: 5 MG, 2X/DAY
     Route: 048
     Dates: start: 201509
  10. RALOXIFENE HCL [Concomitant]
     Active Substance: RALOXIFENE
     Dosage: 60 MG, UNK
  11. PANTOPRAZOLE SODIUM. [Concomitant]
     Active Substance: PANTOPRAZOLE SODIUM
     Dosage: 40 MG, UNK
  12. HYDROXYCHLOROQUINE SULFATE. [Concomitant]
     Active Substance: HYDROXYCHLOROQUINE SULFATE
     Dosage: 200 MG, UNK
  13. TEMAZEPAM. [Concomitant]
     Active Substance: TEMAZEPAM
     Dosage: 30 MG, UNK
  14. BACLOFEN. [Concomitant]
     Active Substance: BACLOFEN
     Dosage: 10 MG, UNK
  15. CLOBETASOL PROPIONATE. [Concomitant]
     Active Substance: CLOBETASOL PROPIONATE
     Dosage: 0.05 %, UNK
  16. CYMBALTA [Concomitant]
     Active Substance: DULOXETINE HYDROCHLORIDE
     Dosage: UNK
  17. CYCLOBENZAPRINE [Concomitant]
     Active Substance: CYCLOBENZAPRINE
     Dosage: 10 MG, UNK
  18. AMBIEN [Concomitant]
     Active Substance: ZOLPIDEM TARTRATE
     Dosage: UNK
  19. RAMIPRIL. [Concomitant]
     Active Substance: RAMIPRIL
     Dosage: 2.5 MG, UNK
  20. CALCITONIN-SALMON [Concomitant]
     Active Substance: CALCITONIN SALMON
     Dosage: UNK(200/SPR)
  21. ACETAZOLAMIDE. [Concomitant]
     Active Substance: ACETAZOLAMIDE
     Dosage: 250 MG, UNK

REACTIONS (4)
  - Sleep disorder [Unknown]
  - Drug ineffective [Unknown]
  - Nervous system disorder [Recovering/Resolving]
  - Gastritis [Unknown]

NARRATIVE: CASE EVENT DATE: 201511
